FAERS Safety Report 24456378 (Version 2)
Quarter: 2024Q4

REPORT INFORMATION
  Report Type: Report from Study
  Country: US (occurrence: US)
  Receive Date: 20241017
  Receipt Date: 20241018
  Transmission Date: 20250114
  Serious: No
  Sender: ROCHE
  Company Number: US-ROCHE-3511243

PATIENT
  Age: 69 Year
  Sex: Female

DRUGS (1)
  1. RITUXAN [Suspect]
     Active Substance: RITUXIMAB
     Indication: Rheumatoid arthritis
     Dosage: 1000MG INTO VEIN X 2 DOSE SEPARATED BY 2 WEEKS REPEAT EVERY 6 MONTHS, DATE OF TREATMENT: 08/NOV/2018
     Route: 041

REACTIONS (2)
  - Renal impairment [Not Recovered/Not Resolved]
  - Blood creatinine increased [Not Recovered/Not Resolved]

NARRATIVE: CASE EVENT DATE: 20230101
